FAERS Safety Report 13946311 (Version 1)
Quarter: 2017Q3

REPORT INFORMATION
  Report Type: Spontaneous
  Country: IT (occurrence: IT)
  Receive Date: 20170907
  Receipt Date: 20170907
  Transmission Date: 20171128
  Serious: Yes (Hospitalization)
  Sender: FDA-Public Use
  Company Number: IT-ASTRAZENECA-2017SE90105

PATIENT
  Age: 17867 Day
  Sex: Male

DRUGS (4)
  1. LEGALON [Concomitant]
     Active Substance: MILK THISTLE
  2. IRESSA [Suspect]
     Active Substance: GEFITINIB
     Indication: LUNG ADENOCARCINOMA
     Route: 048
     Dates: start: 20170524, end: 20170725
  3. SOLDESAM [Concomitant]
     Active Substance: DEXAMETHASONE
  4. SUCRALFIN [Concomitant]

REACTIONS (3)
  - Visual impairment [Recovering/Resolving]
  - Ataxia [Recovering/Resolving]
  - Hypertransaminasaemia [Recovering/Resolving]

NARRATIVE: CASE EVENT DATE: 20170726
